FAERS Safety Report 6442208-X (Version None)
Quarter: 2009Q4

REPORT INFORMATION
  Report Type: 
  Country: None (occurrence: None)
  Receive Date: 20091116
  Receipt Date: 20091110
  Transmission Date: 20100525
  Serious: Yes (Life-Threatening, Hospitalization)
  Sender: FDA-Public Use
  Company Number: JP-ASTRAZENECA-2009SE22555

PATIENT
  Age: 35 Year
  Sex: Male

DRUGS (5)
  1. SEROQUEL [Suspect]
     Dosage: 100 MG UID/QD
     Route: 048
     Dates: end: 20091021
  2. RISPERDAL [Suspect]
     Dosage: 4 MG UID/QD
     Dates: end: 20091021
  3. HALCION [Concomitant]
     Indication: SCHIZOPHRENIA
  4. LENDORMIN [Concomitant]
     Indication: SCHIZOPHRENIA
  5. PROMETHAZINE HCL [Concomitant]
     Indication: SCHIZOPHRENIA

REACTIONS (1)
  - DIABETIC KETOACIDOSIS [None]
